FAERS Safety Report 26120944 (Version 1)
Quarter: 2025Q4

REPORT INFORMATION
  Report Type: Spontaneous
  Country: US (occurrence: None)
  Receive Date: 20251204
  Receipt Date: 20251204
  Transmission Date: 20260118
  Serious: Yes (Hospitalization)
  Sender: FDA-CTU
  Company Number: None

PATIENT
  Age: 62 Year
  Sex: Female
  Weight: 148 kg

DRUGS (2)
  1. XELODA [Suspect]
     Active Substance: CAPECITABINE
     Dates: end: 20251111
  2. ELOXATIN [Suspect]
     Active Substance: OXALIPLATIN
     Dates: end: 20251030

REACTIONS (8)
  - Refusal of treatment by patient [None]
  - Limb discomfort [None]
  - Deep vein thrombosis [None]
  - Thrombosis in device [None]
  - Infusion site extravasation [None]
  - Pneumonia aspiration [None]
  - Dyspnoea [None]
  - Throat tightness [None]

NARRATIVE: CASE EVENT DATE: 20251106
